FAERS Safety Report 9900636 (Version 1)
Quarter: 2014Q1

REPORT INFORMATION
  Report Type: Spontaneous
  Country: US (occurrence: US)
  Receive Date: 20140217
  Receipt Date: 20140217
  Transmission Date: 20141002
  Serious: No
  Sender: FDA-Public Use
  Company Number: US-BIOGENIDEC-2014BI015271

PATIENT
  Sex: Female

DRUGS (1)
  1. AVONEX [Suspect]
     Indication: MULTIPLE SCLEROSIS
     Route: 030
     Dates: start: 20010409

REACTIONS (5)
  - Mobility decreased [Unknown]
  - Nasopharyngitis [Unknown]
  - Influenza like illness [Unknown]
  - Headache [Unknown]
  - Asthenia [Unknown]
